FAERS Safety Report 6231055-X (Version None)
Quarter: 2009Q2

REPORT INFORMATION
  Report Type: 
  Country: None (occurrence: None)
  Receive Date: 20090616
  Receipt Date: 20090612
  Transmission Date: 20091009
  Serious: Yes (Other)
  Sender: FDA-Public Use
  Company Number: GB-ASTRAZENECA-2009GB01322

PATIENT
  Age: 17 Year
  Sex: Female

DRUGS (7)
  1. QUETIAPINE FUMARATE [Suspect]
     Indication: BIPOLAR DISORDER
     Dosage: QUETIAPINE IR
     Route: 048
     Dates: start: 20080101, end: 20090304
  2. QUETIAPINE FUMARATE [Suspect]
     Dosage: QUETIAPINE XL
     Route: 048
     Dates: start: 20090304
  3. QUETIAPINE FUMARATE [Suspect]
     Dosage: QUETIAPINE XL
     Route: 048
     Dates: start: 20090310
  4. QUETIAPINE FUMARATE [Suspect]
     Dosage: QUETIAPINE XL
     Route: 048
     Dates: start: 20090316, end: 20090323
  5. QUETIAPINE FUMARATE [Suspect]
     Dosage: QUETIAPINE IR
     Route: 048
     Dates: start: 20090324, end: 20090330
  6. LAMOTRIGINE [Concomitant]
     Dates: start: 20080101
  7. PROMETHAZINE [Concomitant]
     Dates: start: 20090324

REACTIONS (4)
  - DIZZINESS [None]
  - FATIGUE [None]
  - LEUKOPENIA [None]
  - NEUTROPENIA [None]
